FAERS Safety Report 13767587 (Version 2)
Quarter: 2017Q4

REPORT INFORMATION
  Report Type: Spontaneous
  Country: US (occurrence: US)
  Receive Date: 20170719
  Receipt Date: 20171117
  Transmission Date: 20180320
  Serious: Yes (Death, Life-Threatening, Hospitalization, Other)
  Sender: FDA-Public Use
  Company Number: US-VISTAPHARM, INC.-VER201707-000207

PATIENT
  Age: 22 Year
  Sex: Female

DRUGS (4)
  1. MYCOPHENOLATE MOFETIL. [Concomitant]
     Active Substance: MYCOPHENOLATE MOFETIL
  2. HYDROCODONE AND ACETAMINOPHEN [Suspect]
     Active Substance: ACETAMINOPHEN\HYDROCODONE
     Indication: TOOTHACHE
  3. N-ACETYLCYSTEIN [Concomitant]
     Route: 042
  4. TACROLIMUS. [Concomitant]
     Active Substance: TACROLIMUS

REACTIONS (8)
  - Foetal death [Fatal]
  - Graft versus host disease [Recovered/Resolved]
  - Overdose [Unknown]
  - Hepatic encephalopathy [Unknown]
  - Acute fatty liver of pregnancy [Unknown]
  - Acute hepatic failure [Unknown]
  - HELLP syndrome [Unknown]
  - Toxicity to various agents [Unknown]
